FAERS Safety Report 8512388-0 (Version None)
Quarter: 2012Q3

REPORT INFORMATION
  Report Type: 
  Country: None (occurrence: None)
  Receive Date: 20120716
  Receipt Date: 20120711
  Transmission Date: 20120928
  Serious: Yes (Other)
  Sender: FDA-Public Use
  Company Number: CA-ROCHE-1088047

PATIENT
  Sex: Female
  Weight: 83.082 kg

DRUGS (5)
  1. METRONIDAZOLE [Concomitant]
  2. HYDROXYZINE [Concomitant]
  3. ACTEMRA [Suspect]
     Indication: RHEUMATOID ARTHRITIS
     Route: 042
     Dates: start: 20120227, end: 20120411
  4. FOLIC ACID [Concomitant]
  5. SULFASALAZINE [Concomitant]

REACTIONS (1)
  - PSORIASIS [None]
